FAERS Safety Report 19423099 (Version 1)
Quarter: 2021Q2

REPORT INFORMATION
  Report Type: Spontaneous
  Country: IT (occurrence: IT)
  Receive Date: 20210616
  Receipt Date: 20210616
  Transmission Date: 20210717
  Serious: Yes (Death, Hospitalization, Other)
  Sender: FDA-Public Use
  Company Number: IT-BRISTOL-MYERS SQUIBB COMPANY-BMS-2021-057073

PATIENT
  Age: 53 Year
  Sex: Male

DRUGS (1)
  1. IPILIMUMAB [Suspect]
     Active Substance: IPILIMUMAB
     Indication: METASTASES TO LYMPH NODES
     Dosage: UNAV
     Route: 065
     Dates: start: 20210416

REACTIONS (3)
  - Malignant neoplasm progression [Unknown]
  - COVID-19 [Fatal]
  - Pneumonia [Unknown]
